FAERS Safety Report 4524599-X (Version None)
Quarter: 2004Q4

REPORT INFORMATION
  Report Type: 
  Country: None (occurrence: None)
  Receive Date: 20041117
  Receipt Date: 20040916
  Transmission Date: 20050328
  Serious: Yes (Hospitalization)
  Sender: FDA-Public Use
  Company Number: US-JNJFOC-20040905704

PATIENT
  Age: 78 Year
  Sex: Male
  Weight: 81.6475 kg

DRUGS (1)
  1. LEVAQUIN [Suspect]
     Indication: PROPHYLAXIS
     Dosage: 500 MG
     Dates: start: 20040901, end: 20040901

REACTIONS (3)
  - DYSPNOEA [None]
  - HOARSENESS [None]
  - THROAT TIGHTNESS [None]
